FAERS Safety Report 18980117 (Version 1)
Quarter: 2021Q1

REPORT INFORMATION
  Report Type: Other
  Country: US (occurrence: US)
  Receive Date: 20210308
  Receipt Date: 20210308
  Transmission Date: 20210420
  Serious: No
  Sender: FDA-Public Use
  Company Number: US-ROCHE-2784764

PATIENT
  Sex: Male

DRUGS (1)
  1. OCREVUS [Suspect]
     Active Substance: OCRELIZUMAB
     Indication: MULTIPLE SCLEROSIS
     Dosage: INFUSE 300 MG INTRAVENOUSLY ON DAYS 1 AND 15 THEN INFUSE 600 MG INTRAVENOUSLY EVERY 6 MONTHS
     Route: 042

REACTIONS (1)
  - COVID-19 [Unknown]
